FAERS Safety Report 8615965-1 (Version None)
Quarter: 2012Q3

REPORT INFORMATION
  Report Type: 
  Country: None (occurrence: None)
  Receive Date: 20120823
  Receipt Date: 20120820
  Transmission Date: 20120928
  Serious: No
  Sender: FDA-Public Use
  Company Number: US-PFIZER INC-2012205991

PATIENT
  Age: 57 Year
  Sex: Female
  Weight: 52.154 kg

DRUGS (5)
  1. CHANTIX [Suspect]
     Dosage: UNK
     Route: 048
     Dates: end: 20120101
  2. LEVOXYL [Concomitant]
     Indication: HYPOTHYROIDISM
     Dosage: 100 UG, DAILY
  3. ABILIFY [Concomitant]
     Indication: DEPRESSION
     Dosage: 2 MG,DAILY
  4. EFFEXOR XR [Concomitant]
     Indication: DEPRESSION
     Dosage: 75 MG, DAILY
  5. CHANTIX [Suspect]
     Indication: SMOKING CESSATION THERAPY
     Dosage: 0.5 MG, DAILY
     Route: 048
     Dates: start: 20120101

REACTIONS (1)
  - NIGHTMARE [None]
